FAERS Safety Report 4348315-X (Version None)
Quarter: 2004Q2

REPORT INFORMATION
  Report Type: 
  Country: None (occurrence: None)
  Receive Date: 20040427
  Receipt Date: 20040226
  Transmission Date: 20050107
  Serious: Yes (Congenital Anomaly)
  Sender: FDA-Public Use
  Company Number: US-GLAXOSMITHKLINE-A0500264A

PATIENT

DRUGS (3)
  1. ADVAIR DISKUS 100/50 [Suspect]
     Indication: ASTHMA
     Dosage: 1PUFF TWICE PER DAY
     Dates: start: 20010601
  2. SYNTHROID [Suspect]
     Indication: HYPOTHYROIDISM
     Route: 065
  3. ZANTAC [Suspect]
     Dosage: 250MG AS REQUIRED
     Route: 065

REACTIONS (2)
  - DOUBLE OUTLET RIGHT VENTRICLE [None]
  - PULMONARY VALVE STENOSIS [None]
